FAERS Safety Report 16656894 (Version 1)
Quarter: 2019Q3

REPORT INFORMATION
  Report Type: Report from Study
  Country: US (occurrence: US)
  Receive Date: 20190801
  Receipt Date: 20190801
  Transmission Date: 20191004
  Serious: Yes (Death)
  Sender: FDA-Public Use
  Company Number: US-MYLANLABS-2019M1072122

PATIENT
  Age: 58 Year
  Sex: Female

DRUGS (1)
  1. FULPHILA [Suspect]
     Active Substance: PEGFILGRASTIM-JMDB
     Indication: PANCREATIC CARCINOMA
     Dosage: UNK

REACTIONS (1)
  - Death [Fatal]
